FAERS Safety Report 5078507-6 (Version None)
Quarter: 2006Q3

REPORT INFORMATION
  Report Type: 
  Country: None (occurrence: None)
  Receive Date: 20060808
  Receipt Date: 20060728
  Transmission Date: 20061208
  Serious: Yes (Hospitalization, Other)
  Sender: FDA-Public Use
  Company Number: 2005BI007223

PATIENT
  Sex: Female

DRUGS (8)
  1. AVONEX [Suspect]
     Indication: MULTIPLE SCLEROSIS
     Dosage: 30 UG;QW;IM
     Route: 030
     Dates: start: 20020403, end: 20030714
  2. AVONEX [Suspect]
     Indication: MULTIPLE SCLEROSIS
     Dosage: SEE IMAGE
     Route: 030
     Dates: start: 20030814, end: 20050301
  3. AVONEX [Suspect]
     Indication: MULTIPLE SCLEROSIS
     Dosage: SEE IMAGE
     Route: 030
     Dates: start: 20060701, end: 20060701
  4. AVONEX [Suspect]
  5. COUMADIN [Concomitant]
  6. NEXIUM [Concomitant]
  7. MIRALAX [Concomitant]
  8. ZOMETA [Concomitant]

REACTIONS (4)
  - BONE NEOPLASM MALIGNANT [None]
  - BREAST CANCER METASTATIC [None]
  - FATIGUE [None]
  - GASTRIC CANCER [None]
